FAERS Safety Report 18654306 (Version 1)
Quarter: 2020Q4

REPORT INFORMATION
  Report Type: Spontaneous
  Country: US (occurrence: US)
  Receive Date: 20201223
  Receipt Date: 20201223
  Transmission Date: 20210114
  Serious: Yes (Other)
  Sender: FDA-Public Use
  Company Number: None

PATIENT
  Age: 57 Year
  Sex: Male
  Weight: 136.08 kg

DRUGS (6)
  1. SEROQUEL [Concomitant]
     Active Substance: QUETIAPINE FUMARATE
  2. DEPAKOTE [Concomitant]
     Active Substance: DIVALPROEX SODIUM
  3. VISTANIL [Concomitant]
  4. CAPLYTA [Suspect]
     Active Substance: LUMATEPERONE
     Indication: SCHIZOAFFECTIVE DISORDER
     Dosage: ?          QUANTITY:1;?
     Route: 048
     Dates: start: 20201010, end: 20201102
  5. ABILIFY [Concomitant]
     Active Substance: ARIPIPRAZOLE
  6. BUPROPION. [Concomitant]
     Active Substance: BUPROPION

REACTIONS (1)
  - Anxiety [None]

NARRATIVE: CASE EVENT DATE: 20201010
